FAERS Safety Report 6496472-1 (Version None)
Quarter: 2009Q4

REPORT INFORMATION
  Report Type: 
  Country: None (occurrence: None)
  Receive Date: 20091210
  Receipt Date: 20091130
  Transmission Date: 20100525
  Serious: Yes (Other)
  Sender: FDA-Public Use
  Company Number: SPV1-2009-02414

PATIENT

DRUGS (1)
  1. METHYLPHANIDATE HYDROCHLORIDE [Suspect]

REACTIONS (1)
  - SUDDEN HEARING LOSS [None]
